FAERS Safety Report 15279046 (Version 1)
Quarter: 2018Q3

REPORT INFORMATION
  Report Type: Spontaneous
  Country: GB (occurrence: GB)
  Receive Date: 20180815
  Receipt Date: 20180815
  Transmission Date: 20181010
  Serious: Yes (Other)
  Sender: FDA-Public Use
  Company Number: GB-TEVA-2018-GB-941049

PATIENT
  Age: 26 Year
  Sex: Female
  Weight: 60 kg

DRUGS (7)
  1. SALBUTAMOL [Concomitant]
     Active Substance: ALBUTEROL
     Dosage: UP TO FOUR TIMES A DAY.
     Route: 055
     Dates: start: 20171213
  2. LORATADINE. [Suspect]
     Active Substance: LORATADINE
     Route: 065
     Dates: start: 20180706
  3. NAPROXEN. [Concomitant]
     Active Substance: NAPROXEN
     Dosage: 1 TO BE TAKEN 2?3 TIMES A DAY AFTER FOOD
     Dates: start: 20180423, end: 20180521
  4. ETHOSUXIMIDE. [Concomitant]
     Active Substance: ETHOSUXIMIDE
     Dosage: TAKE AS DIRECTED BY CONSULTANT, INCREASING REGIMEN.
     Dates: start: 20180705
  5. SYMBICORT [Concomitant]
     Active Substance: BUDESONIDE\FORMOTEROL FUMARATE DIHYDRATE
     Dosage: USE AS DIRECTED.
     Dates: start: 20171213
  6. LACOSAMIDE. [Concomitant]
     Active Substance: LACOSAMIDE
     Dates: start: 20170822
  7. PHENOBARBITAL. [Concomitant]
     Active Substance: PHENOBARBITAL
     Dates: start: 20170808

REACTIONS (1)
  - Seizure [Recovered/Resolved]

NARRATIVE: CASE EVENT DATE: 20180706
